FAERS Safety Report 15602795 (Version 1)
Quarter: 2018Q4

REPORT INFORMATION
  Report Type: Spontaneous
  Country: US (occurrence: US)
  Receive Date: 20181109
  Receipt Date: 20181109
  Transmission Date: 20190205
  Serious: Yes (Other)
  Sender: FDA-Public Use
  Company Number: US-GILEAD-2018-0371977

PATIENT
  Age: 64 Year
  Sex: Male
  Weight: 73.6 kg

DRUGS (1)
  1. YESCARTA [Suspect]
     Active Substance: AXICABTAGENE CILOLEUCEL
     Indication: DIFFUSE LARGE B-CELL LYMPHOMA
     Dosage: UNK
     Route: 065
     Dates: start: 20180610, end: 20180610

REACTIONS (20)
  - Tachypnoea [Unknown]
  - Neuropathy peripheral [Unknown]
  - Confusional state [Unknown]
  - Decreased appetite [Unknown]
  - Cytokine release syndrome [Unknown]
  - Pyrexia [Unknown]
  - Muscular weakness [Unknown]
  - Encephalopathy [Unknown]
  - Tremor [Unknown]
  - Motor dysfunction [Unknown]
  - Cerebrovascular accident [Unknown]
  - Disorientation [Unknown]
  - Dysphagia [Unknown]
  - Malaise [Unknown]
  - Somnolence [Unknown]
  - Tachycardia [Unknown]
  - Aphasia [Unknown]
  - Hemiparesis [Unknown]
  - Memory impairment [Unknown]
  - Incontinence [Unknown]

NARRATIVE: CASE EVENT DATE: 20180604
